FAERS Safety Report 8960693 (Version 1)
Quarter: 2012Q4

REPORT INFORMATION
  Report Type: 
  Country: CO (occurrence: CO)
  Receive Date: 20121213
  Receipt Date: 20121213
  Transmission Date: 20130627
  Serious: Yes (Other)
  Sender: FDA-Public Use
  Company Number: CO-MERCK-1212COL003799

PATIENT
  Sex: Male

DRUGS (3)
  1. PEG-INTRON [Suspect]
     Dosage: UNK, qw
     Dates: start: 20120530
  2. VICTRELIS [Suspect]
     Dosage: UNK
     Dates: start: 20120530
  3. RIBAVIRIN [Suspect]

REACTIONS (1)
  - Pancytopenia [Unknown]
